FAERS Safety Report 8522249 (Version 4)
Quarter: 2013Q3

REPORT INFORMATION
  Report Type: Spontaneous
  Country: US (occurrence: None)
  Receive Date: 20120411
  Receipt Date: 20130709
  Transmission Date: 20140515
  Serious: Yes (Other)
  Sender: FDA-Public Use
  Company Number: 2012-1608

PATIENT
  Age: 10 Year
  Sex: Male
  Weight: 35 kg

DRUGS (2)
  1. INCRELEX [Suspect]
     Indication: PRIMARY INSULIN LIKE GROWTH FACTOR-1 DEFICIENCY
     Dosage: 5.8 MG (2.9 MG, 2 IN 1 D
     Dates: start: 20090323
  2. MULTIVITAMIN (MULTIVITAMIN /00831701/) [Concomitant]

REACTIONS (2)
  - Haematuria [None]
  - Constipation [None]
